FAERS Safety Report 7207689-2 (Version None)
Quarter: 2011Q1

REPORT INFORMATION
  Report Type: 
  Country: None (occurrence: None)
  Receive Date: 20110103
  Receipt Date: 20101228
  Transmission Date: 20110831
  Serious: Yes (Other)
  Sender: FDA-Public Use
  Company Number: CA-PFIZER INC-2009153737

PATIENT
  Age: 18 Year
  Sex: Male
  Weight: 39 kg

DRUGS (12)
  1. ZELDOX [Suspect]
     Indication: POST-TRAUMATIC STRESS DISORDER
     Dosage: 17.5 MG IN 24 HOUR CYCLE (2.5MG IN THE MORNING, 2.5 AT 14:00PM, 12.5 AT 20:00PM
  2. ZELDOX [Suspect]
     Indication: HALLUCINATION
     Dosage: 15 MG (7.5MG AT NIGHT; 5MG MORNING; 2.5MG AT 2PM)
     Dates: start: 20090214, end: 20090419
  3. ZELDOX [Suspect]
     Dosage: 22.5 MG (5 MG IN THE MORNING, 2.5 MG IN THE AFTERNOON, 15 MG AT NIGHT)
  4. AMOXICILLIN [Suspect]
     Indication: TOOTH INFECTION
     Dosage: UNK
     Dates: start: 20100814, end: 20100825
  5. ZELDOX [Suspect]
     Indication: HALLUCINATION, AUDITORY
     Dosage: 17.5 MG, (12.5MG AT NIGHT 8PM; 2.5MG MORNING; 2.5MG AT 2PM)
     Dates: start: 20090420
  6. ZELDOX [Suspect]
     Dosage: 25MG (10 MG IN THE MORNING, 15 MG AT BEDTIME)
  7. ATIVAN [Suspect]
     Dosage: 0.125 MG (0.5 MG X 1/4)
  8. ZOPICLONE [Concomitant]
     Dosage: UNK
  9. ZELDOX [Suspect]
     Indication: PSYCHOTIC DISORDER
     Dosage: 7.5 MG, 2X/DAY
     Dates: start: 20080801, end: 20090213
  10. ZELDOX [Suspect]
     Dosage: 30 MG, IN SEPARATE DOSES
  11. ZELDOX [Suspect]
     Dosage: 25 MG (5MG 8AM, 5MG 2PM, 15MG 8PM)
     Dates: start: 20100831
  12. ZELDOX [Suspect]
     Dosage: 10 MG IN THE MORNING, 20 MG AT BEDTIME, 2.5 MG AS NEEDED AT 5PM

REACTIONS (22)
  - FEAR [None]
  - THINKING ABNORMAL [None]
  - TOOTH INFECTION [None]
  - PSYCHOTIC DISORDER [None]
  - NASOPHARYNGITIS [None]
  - UNRESPONSIVE TO STIMULI [None]
  - LETHARGY [None]
  - NUCHAL RIGIDITY [None]
  - SLEEP APNOEA SYNDROME [None]
  - SOMNOLENCE [None]
  - TENSION [None]
  - WEIGHT INCREASED [None]
  - DRUG EFFECT DECREASED [None]
  - OCULOGYRIC CRISIS [None]
  - POSTURE ABNORMAL [None]
  - DEPRESSION [None]
  - MUSCLE DISORDER [None]
  - HALLUCINATION [None]
  - FATIGUE [None]
  - STARING [None]
  - ANXIETY [None]
  - INSOMNIA [None]
